FAERS Safety Report 19702251 (Version 5)
Quarter: 2021Q4

REPORT INFORMATION
  Report Type: Other
  Country: JP (occurrence: JP)
  Receive Date: 20210814
  Receipt Date: 20211126
  Transmission Date: 20220303
  Serious: Yes (Other)
  Sender: FDA-Public Use
  Company Number: JP-CHUGAI-2021010408

PATIENT
  Age: 76 Year
  Sex: Male
  Weight: 44.5 kg

DRUGS (4)
  1. ATEZOLIZUMAB [Suspect]
     Active Substance: ATEZOLIZUMAB
     Indication: Lung adenocarcinoma
     Route: 041
     Dates: start: 20210514, end: 20210625
  2. PACLITAXEL [Suspect]
     Active Substance: PACLITAXEL
     Indication: Lung adenocarcinoma
     Dosage: 145 MILLIGRAM
     Route: 041
     Dates: start: 20210514
  3. PACLITAXEL [Suspect]
     Active Substance: PACLITAXEL
     Dosage: 145 MILLIGRAM
     Route: 041
     Dates: end: 20210702
  4. CARBOPLATIN [Concomitant]
     Active Substance: CARBOPLATIN
     Indication: Lung adenocarcinoma
     Dosage: 300 MILLIGRAM
     Route: 041
     Dates: start: 20210514, end: 20210625

REACTIONS (2)
  - Interstitial lung disease [Recovering/Resolving]
  - Neutrophil count decreased [Recovered/Resolved]

NARRATIVE: CASE EVENT DATE: 20210527
